FAERS Safety Report 6486584-0 (Version None)
Quarter: 2009Q4

REPORT INFORMATION
  Report Type: 
  Country: None (occurrence: None)
  Receive Date: 20091210
  Receipt Date: 20091204
  Transmission Date: 20100525
  Serious: Yes (Death, Hospitalization, Other)
  Sender: FDA-Public Use
  Company Number: PHEH2009US12885

PATIENT
  Sex: Female

DRUGS (2)
  1. EXJADE [Suspect]
     Indication: LEUKAEMIA
     Dosage: 1500 MG, DAILY
     Route: 048
     Dates: start: 20090717
  2. EXJADE [Suspect]
     Indication: IRON OVERLOAD

REACTIONS (6)
  - DISEASE PROGRESSION [None]
  - HAEMOGLOBIN DECREASED [None]
  - LEUKOCYTOSIS [None]
  - MALIGNANT NEOPLASM PROGRESSION [None]
  - PANCYTOPENIA [None]
  - SERUM FERRITIN INCREASED [None]
